FAERS Safety Report 5678835-7 (Version None)
Quarter: 2008Q1

REPORT INFORMATION
  Report Type: 
  Country: None (occurrence: None)
  Receive Date: 20080321
  Receipt Date: 20080313
  Transmission Date: 20080703
  Serious: Yes (Other)
  Sender: FDA-Public Use
  Company Number: 025237

PATIENT
  Age: 75 Year
  Sex: Female

DRUGS (5)
  1. HYDROMORPHONE HCL [Suspect]
     Indication: PROCEDURAL PAIN
     Dosage: 1 MG, Q4HR AS NEEDED, INTRAVENOUS
     Route: 042
  2. VANCOMYCIN [Concomitant]
  3. FUROSEMIDE [Concomitant]
  4. STATIN [Concomitant]
  5. ACETYLSALICYLIC ACID SRT [Concomitant]

REACTIONS (1)
  - ANAPHYLACTOID REACTION [None]
